FAERS Safety Report 6698140-X (Version None)
Quarter: 2010Q2

REPORT INFORMATION
  Report Type: 
  Country: None (occurrence: None)
  Receive Date: 20100427
  Receipt Date: 20100415
  Transmission Date: 20101027
  Serious: Yes (Other)
  Sender: FDA-Public Use
  Company Number: US-PFIZER INC-2010048044

PATIENT
  Sex: Male
  Weight: 68.027 kg

DRUGS (1)
  1. SUTENT [Suspect]
     Dosage: 25 MG, UNK
     Dates: end: 20100401

REACTIONS (1)
  - OEDEMA PERIPHERAL [None]
